FAERS Safety Report 23709553 (Version 1)
Quarter: 2024Q2

REPORT INFORMATION
  Report Type: Spontaneous
  Country: CA (occurrence: CA)
  Receive Date: 20240404
  Receipt Date: 20240404
  Transmission Date: 20240716
  Serious: Yes (Other)
  Sender: FDA-Public Use
  Company Number: CA-STRIDES ARCOLAB LIMITED-2024SP000030

PATIENT
  Age: 47 Year
  Sex: Male

DRUGS (5)
  1. COLCHICINE [Suspect]
     Active Substance: COLCHICINE
     Indication: Familial mediterranean fever
     Dosage: 0.6 MILLIGRAM, BID
     Route: 065
  2. COLCHICINE [Suspect]
     Active Substance: COLCHICINE
     Dosage: 0.6 MILLIGRAM, TID
     Route: 065
  3. PREDNISOLONE [Suspect]
     Active Substance: PREDNISOLONE
     Indication: Familial mediterranean fever
     Dosage: UNK (HIGH-DOSE)
     Route: 048
  4. PREDNISOLONE [Suspect]
     Active Substance: PREDNISOLONE
     Dosage: UNK (REDUCED BELOW 20 MG DAILY)
     Route: 048
  5. AZATHIOPRINE [Suspect]
     Active Substance: AZATHIOPRINE
     Indication: Familial mediterranean fever
     Dosage: 100 MILLIGRAM, DAILY
     Route: 065

REACTIONS (3)
  - Therapy partial responder [Unknown]
  - Pneumonia [Unknown]
  - Off label use [Unknown]
